FAERS Safety Report 4796740-5 (Version None)
Quarter: 2005Q3

REPORT INFORMATION
  Report Type: 
  Country: None (occurrence: None)
  Receive Date: 20050916
  Receipt Date: 20050203
  Transmission Date: 20060218
  Serious: Yes (Other)
  Sender: FDA-Public Use
  Company Number: US-JNJFOC-20041008540

PATIENT
  Age: 49 Year
  Sex: Female
  Weight: 54.4316 kg

DRUGS (4)
  1. TOPAMAX [Suspect]
     Indication: NERVE INJURY
     Dosage: 100 MG, 1 IN 1 DAY, ORAL
     Route: 048
  2. NEURONTIN [Concomitant]
  3. VICODIN [Concomitant]
  4. DARVOCET [Concomitant]

REACTIONS (4)
  - COGNITIVE DISORDER [None]
  - RENAL DISORDER [None]
  - SPEECH DISORDER [None]
  - URINE OUTPUT DECREASED [None]
